FAERS Safety Report 9172967 (Version 1)
Quarter: 2013Q1

REPORT INFORMATION
  Report Type: Report from Study
  Country: DE (occurrence: DE)
  Receive Date: 20130320
  Receipt Date: 20130320
  Transmission Date: 20140127
  Serious: Yes (Hospitalization)
  Sender: FDA-Public Use
  Company Number: DE-009507513-1303DEU007748

PATIENT
  Age: 63 Year
  Sex: Female
  Weight: 63 kg

DRUGS (6)
  1. BOCEPREVIR [Suspect]
     Indication: CHRONIC HEPATITIS C
     Dosage: 1200 MG, 3X2
     Route: 048
     Dates: start: 20120906
  2. BOCEPREVIR [Suspect]
     Dosage: UNK
     Route: 048
  3. PEGASYS [Suspect]
     Indication: CHRONIC HEPATITIS C
     Dosage: 180 MICROGRAM, QW
     Route: 058
     Dates: start: 20120809
  4. PEGASYS [Suspect]
     Dosage: 135 MICROGRAM, QW
     Route: 058
     Dates: start: 20120921
  5. RIBAVIRIN [Suspect]
     Indication: CHRONIC HEPATITIS C
     Dosage: 400 MG, BID
     Route: 048
     Dates: start: 20120809
  6. RIBAVIRIN [Suspect]
     Dosage: UNK
     Route: 048

REACTIONS (2)
  - Anaemia [Unknown]
  - Chills [Recovered/Resolved]
